FAERS Safety Report 12876878 (Version 1)
Quarter: 2016Q4

REPORT INFORMATION
  Report Type: Spontaneous
  Country: US (occurrence: US)
  Receive Date: 20161024
  Receipt Date: 20161024
  Transmission Date: 20170207
  Serious: No
  Sender: FDA-Public Use
  Company Number: US-GLAXOSMITHKLINE-US2016154799

PATIENT
  Age: 58 Year
  Sex: Female

DRUGS (2)
  1. ABREVA [Suspect]
     Active Substance: DOCOSANOL
     Indication: ORAL HERPES
     Dosage: UNK
     Dates: start: 20161016
  2. ABREVA [Suspect]
     Active Substance: DOCOSANOL
     Indication: HERPES ZOSTER
     Dosage: UNK
     Dates: start: 20161017

REACTIONS (4)
  - Therapeutic response unexpected [Unknown]
  - Expired product administered [Unknown]
  - Drug administered at inappropriate site [Unknown]
  - Intentional product use issue [Unknown]
